FAERS Safety Report 5897771-4 (Version None)
Quarter: 2008Q3

REPORT INFORMATION
  Report Type: 
  Country: None (occurrence: None)
  Receive Date: 20080925
  Receipt Date: 20080919
  Transmission Date: 20090109
  Serious: Yes (Other)
  Sender: FDA-Public Use
  Company Number: PHNU2008DE01572

PATIENT
  Sex: Male

DRUGS (9)
  1. ZOMETA [Suspect]
     Indication: METASTASES TO BONE
     Dosage: 4 MG EVERY 4 WEEKS
     Route: 042
     Dates: start: 20030601, end: 20071201
  2. ESTRAMUSTINE [Concomitant]
  3. ANTINEOPLASTIC AGENTS [Concomitant]
  4. PREDNISOLON [Concomitant]
     Indication: METASTASES TO BONE
     Dosage: 10 MG DAILY
     Route: 048
     Dates: start: 20070601
  5. PREDNISOLON [Concomitant]
     Indication: PROSTATE CANCER
  6. NOVALGIN [Concomitant]
     Dosage: 1500 MG DAILY
     Route: 048
     Dates: start: 20070601
  7. DICLOFENAC [Concomitant]
     Dosage: 100 MG, UNK
     Route: 048
     Dates: start: 20070601
  8. OXAZEPAM [Concomitant]
     Dosage: 10 MG DAILY
     Route: 048
     Dates: start: 20070601
  9. TRENANTONE [Concomitant]
     Dosage: 11.25 MG, Q3MO
     Route: 058
     Dates: start: 20030601

REACTIONS (5)
  - IMPAIRED HEALING [None]
  - OSTEONECROSIS [None]
  - RADIOTHERAPY [None]
  - SURGERY [None]
  - TOOTH EXTRACTION [None]
